FAERS Safety Report 20886656 (Version 1)
Quarter: 2022Q2

REPORT INFORMATION
  Report Type: Spontaneous
  Country: None (occurrence: FR)
  Receive Date: 20220527
  Receipt Date: 20220527
  Transmission Date: 20220720
  Serious: Yes (Other)
  Sender: FDA-Public Use
  Company Number: FR-AFSSAPS-BX20222671

PATIENT
  Age: 66 Year
  Sex: Male
  Weight: 68 kg

DRUGS (1)
  1. OXYGEN [Suspect]
     Active Substance: OXYGEN
     Indication: Dependence on oxygen therapy
     Route: 045
     Dates: start: 20190419

REACTIONS (1)
  - Medical device site burn [Recovered/Resolved with Sequelae]

NARRATIVE: CASE EVENT DATE: 20220404
